FAERS Safety Report 5512258-6 (Version None)
Quarter: 2007Q4

REPORT INFORMATION
  Report Type: 
  Country: None (occurrence: None)
  Receive Date: 20071112
  Receipt Date: 20070820
  Transmission Date: 20080405
  Serious: No
  Sender: FDA-Public Use
  Company Number: A0673087A

PATIENT
  Age: 4 Year
  Sex: Female

DRUGS (2)
  1. VERAMYST [Suspect]
     Dosage: 1SPR UNKNOWN
     Route: 045
  2. NO CONCURRENT MEDICATION [Concomitant]

REACTIONS (1)
  - DYSPHONIA [None]
